FAERS Safety Report 9209118 (Version 1)
Quarter: 2013Q2

REPORT INFORMATION
  Report Type: Report from Study
  Country: CA (occurrence: CA)
  Receive Date: 20130404
  Receipt Date: 20130404
  Transmission Date: 20140414
  Serious: Yes (Other)
  Sender: FDA-Public Use
  Company Number: CA-JNJFOC-20130317842

PATIENT
  Sex: Female

DRUGS (8)
  1. REMICADE [Suspect]
     Indication: JUVENILE IDIOPATHIC ARTHRITIS
     Route: 042
  2. REMICADE [Suspect]
     Indication: JUVENILE IDIOPATHIC ARTHRITIS
     Route: 042
  3. METHOTREXATE [Concomitant]
     Route: 065
  4. VOLTAREN [Concomitant]
     Route: 065
  5. CORTISONE [Concomitant]
     Route: 065
  6. FOLIC ACID [Concomitant]
     Route: 065
  7. MAXIDEX (DEXAMETHASONE) [Concomitant]
     Route: 065
  8. PREDNISONE [Concomitant]
     Route: 065

REACTIONS (1)
  - Uveitis [Unknown]
